FAERS Safety Report 20627959 (Version 3)
Quarter: 2022Q3

REPORT INFORMATION
  Report Type: Spontaneous
  Country: CL (occurrence: CL)
  Receive Date: 20220323
  Receipt Date: 20220713
  Transmission Date: 20221026
  Serious: Yes (Hospitalization, Other)
  Sender: FDA-Public Use
  Company Number: CL-GLAXOSMITHKLINE-CL2022AMR049396

PATIENT

DRUGS (4)
  1. LAMICTAL [Suspect]
     Active Substance: LAMOTRIGINE
     Indication: Product used for unknown indication
     Dosage: A DOSE OF 12.5 MG FOR 2 WEEKS
  2. LAMICTAL [Suspect]
     Active Substance: LAMOTRIGINE
     Dosage: 25 MG
  3. BUPROPION [Suspect]
     Active Substance: BUPROPION
     Indication: Product used for unknown indication
     Dosage: UNK
  4. DESVENLAFAXINE [Suspect]
     Active Substance: DESVENLAFAXINE
     Indication: Product used for unknown indication
     Dosage: UNK

REACTIONS (12)
  - Hospitalisation [Unknown]
  - Immunosuppression [Unknown]
  - Encephalitis [Unknown]
  - Leukopenia [Unknown]
  - Meningitis aseptic [Unknown]
  - Rash [Unknown]
  - Pyrexia [Unknown]
  - Dizziness [Unknown]
  - Cognitive disorder [Unknown]
  - Confusional state [Unknown]
  - Transaminases increased [Unknown]
  - Fatigue [Unknown]
